FAERS Safety Report 5676659-8 (Version None)
Quarter: 2008Q1

REPORT INFORMATION
  Report Type: 
  Country: None (occurrence: None)
  Receive Date: 20080318
  Receipt Date: 20080310
  Transmission Date: 20080703
  Serious: Yes (Death)
  Sender: FDA-Public Use
  Company Number: E2020-02407-SPO-JP

PATIENT
  Age: 79 Year
  Sex: Female
  Weight: 32 kg

DRUGS (1)
  1. ARICEPT [Suspect]
     Indication: DEMENTIA
     Dosage: 1 MG, 1 IN 1 D, ORAL
     Route: 048
     Dates: start: 20071225

REACTIONS (2)
  - RESPIRATORY RATE DECREASED [None]
  - SUDDEN DEATH [None]
